FAERS Safety Report 5569563-7 (Version None)
Quarter: 2007Q4

REPORT INFORMATION
  Report Type: 
  Country: None (occurrence: None)
  Receive Date: 20071220
  Receipt Date: 20071212
  Transmission Date: 20080405
  Serious: Yes (Other)
  Sender: FDA-Public Use
  Company Number: GB-ELI_LILLY_AND_COMPANY-GB200712002611

PATIENT
  Age: 63 Year
  Weight: 79.55 kg

DRUGS (4)
  1. YENTREVE [Suspect]
     Indication: URINARY TRACT DISORDER
     Dosage: 40 MG, UNKNOWN
     Route: 048
     Dates: start: 20051118, end: 20071026
  2. CO-CODAMOL [Concomitant]
     Indication: PAIN
     Dosage: UNK, UNKNOWN
     Route: 048
     Dates: start: 20070905
  3. ERYTHROMYCIN [Concomitant]
     Indication: LARYNGITIS
     Dosage: 250 MG, UNKNOWN
     Route: 048
     Dates: start: 20071026, end: 20071101
  4. MELOXICAM [Concomitant]
     Dosage: 7.5 MG, UNKNOWN
     Route: 048
     Dates: start: 20041221

REACTIONS (3)
  - DRUG WITHDRAWAL SYNDROME [None]
  - HYPERHIDROSIS [None]
  - PANIC REACTION [None]
